FAERS Safety Report 17509838 (Version 2)
Quarter: 2020Q4

REPORT INFORMATION
  Report Type: Spontaneous
  Country: US (occurrence: US)
  Receive Date: 20200306
  Receipt Date: 20201210
  Transmission Date: 20210113
  Serious: Yes (Other)
  Sender: FDA-Public Use
  Company Number: US-SA-2020SA056957

PATIENT

DRUGS (2)
  1. RANITIDINE. [Suspect]
     Active Substance: RANITIDINE
     Dosage: UNK
     Dates: start: 2018, end: 201910
  2. ZANTAC 150 (RANITIDINE HYDROCHLORIDE) [Suspect]
     Active Substance: RANITIDINE HYDROCHLORIDE
     Dosage: UNK UNK, QD
     Dates: start: 20140101, end: 20190915

REACTIONS (7)
  - Hepatic cancer stage IV [Unknown]
  - Pain [Not Recovered/Not Resolved]
  - Gastric cancer [Unknown]
  - Anhedonia [Unknown]
  - Bone cancer [Unknown]
  - Bone cancer [Unknown]
  - Anxiety [Unknown]

NARRATIVE: CASE EVENT DATE: 20190826
